FAERS Safety Report 6152169-9 (Version None)
Quarter: 2009Q2

REPORT INFORMATION
  Report Type: 
  Country: None (occurrence: None)
  Receive Date: 20090409
  Receipt Date: 20090409
  Transmission Date: 20091009
  Serious: Yes (Other)
  Sender: FDA-Public Use
  Company Number: None

PATIENT
  Age: 59 Year
  Sex: Female
  Weight: 60.782 kg

DRUGS (1)
  1. PANTOPRAZOLE SODIUM [Suspect]
     Indication: OESOPHAGITIS
     Dosage: 40 MG 1X DAILY PO
     Route: 048
     Dates: start: 20090326, end: 20090404

REACTIONS (3)
  - PAIN IN EXTREMITY [None]
  - PRURITUS GENERALISED [None]
  - URTICARIA [None]
